FAERS Safety Report 5008390-6 (Version None)
Quarter: 2006Q2

REPORT INFORMATION
  Report Type: 
  Country: None (occurrence: None)
  Receive Date: 20060523
  Receipt Date: 20060519
  Transmission Date: 20061013
  Serious: Yes (Hospitalization)
  Sender: FDA-Public Use
  Company Number: FR-JNJFOC-20060504269

PATIENT
  Age: 20 Year
  Sex: Male

DRUGS (8)
  1. OFLOCET [Suspect]
     Route: 065
  2. OFLOCET [Suspect]
     Route: 065
  3. TARDIFERON [Interacting]
     Indication: DRUG USE FOR UNKNOWN INDICATION
     Route: 065
  4. AUGMENTIN '125' [Concomitant]
     Route: 065
  5. AUGMENTIN '125' [Concomitant]
     Route: 065
  6. GENTAMICIN [Concomitant]
     Route: 065
  7. OXACILLIN [Concomitant]
     Route: 065
  8. MOPRAL [Concomitant]

REACTIONS (2)
  - DRUG INTERACTION [None]
  - EXTREMITY NECROSIS [None]
